FAERS Safety Report 15711762 (Version 2)
Quarter: 2019Q1

REPORT INFORMATION
  Report Type: Spontaneous
  Country: US (occurrence: US)
  Receive Date: 20181212
  Receipt Date: 20190102
  Transmission Date: 20190417
  Serious: Yes (Death)
  Sender: FDA-Public Use
  Company Number: US-INSYS THERAPEUTICS, INC-INS201812-000440

PATIENT
  Sex: Female
  Weight: 40 kg

DRUGS (9)
  1. SYNDROS [Suspect]
     Active Substance: DRONABINOL
     Indication: VOMITING
  2. PERCOCET [Concomitant]
     Active Substance: ACETAMINOPHEN\OXYCODONE HYDROCHLORIDE
  3. POTASSIUM CHLORIDE. [Concomitant]
     Active Substance: POTASSIUM CHLORIDE
  4. NEXIUM [Concomitant]
     Active Substance: ESOMEPRAZOLE MAGNESIUM
  5. ETHAMBUTOL [Concomitant]
     Active Substance: ETHAMBUTOL HYDROCHLORIDE
  6. RIFAMPICIN [Concomitant]
     Active Substance: RIFAMPIN
  7. SYNDROS [Suspect]
     Active Substance: DRONABINOL
     Indication: NAUSEA
     Dates: start: 201809
  8. GD AZITHROMYCIN [Concomitant]
  9. SYNDROS [Suspect]
     Active Substance: DRONABINOL
     Indication: MALNUTRITION

REACTIONS (1)
  - Death [Fatal]
